FAERS Safety Report 8530672-1 (Version None)
Quarter: 2012Q3

REPORT INFORMATION
  Report Type: 
  Country: None (occurrence: None)
  Receive Date: 20120723
  Receipt Date: 20120608
  Transmission Date: 20120928
  Serious: No
  Sender: FDA-Public Use
  Company Number: US-TEVA-342284USA

PATIENT
  Sex: Female

DRUGS (1)
  1. TRIAMCINOLONE [Suspect]
     Route: 045

REACTIONS (2)
  - GINGIVAL PAIN [None]
  - ERYTHEMA [None]
